FAERS Safety Report 6049542-6 (Version None)
Quarter: 2009Q1

REPORT INFORMATION
  Report Type: 
  Country: None (occurrence: None)
  Receive Date: 20090121
  Receipt Date: 20090107
  Transmission Date: 20090719
  Serious: Yes (Disabling)
  Sender: FDA-Public Use
  Company Number: US025264

PATIENT
  Age: 49 Year
  Sex: Male

DRUGS (5)
  1. PROVIGIL [Suspect]
     Indication: NARCOLEPSY
     Dosage: 100 MG QD; ORAL
     Route: 048
  2. BACLOFEN [Concomitant]
  3. GABAPENTIN [Concomitant]
  4. PROPRANOLOL [Concomitant]
  5. TRIMETHOPRIM [Concomitant]

REACTIONS (1)
  - MULTIPLE SCLEROSIS [None]
